FAERS Safety Report 17990174 (Version 1)
Quarter: 2020Q3

REPORT INFORMATION
  Report Type: Report from Study
  Country: US (occurrence: US)
  Receive Date: 20200707
  Receipt Date: 20200707
  Transmission Date: 20201103
  Serious: Yes (Hospitalization)
  Sender: FDA-Public Use
  Company Number: US-BRISTOL-MYERS SQUIBB COMPANY-BMS-2020-052840

PATIENT
  Sex: Male

DRUGS (2)
  1. STEROIDS [Concomitant]
     Active Substance: UNSPECIFIED INGREDIENT
     Indication: PRODUCT USED FOR UNKNOWN INDICATION
     Route: 065
  2. NIVOLUMAB [Suspect]
     Active Substance: NIVOLUMAB
     Indication: MALIGNANT MELANOMA
     Dosage: UNK, Q2WK
     Route: 065
     Dates: start: 201908, end: 202002

REACTIONS (7)
  - Asthenia [Unknown]
  - Arthralgia [Unknown]
  - Dysphagia [Unknown]
  - Myalgia [Unknown]
  - Dyspnoea [Unknown]
  - General physical health deterioration [Unknown]
  - Oesophageal disorder [Unknown]
